FAERS Safety Report 9461499 (Version 1)
Quarter: 2013Q3

REPORT INFORMATION
  Report Type: Spontaneous
  Country: FR (occurrence: FR)
  Receive Date: 20130816
  Receipt Date: 20130816
  Transmission Date: 20140515
  Serious: Yes (Other)
  Sender: FDA-Public Use
  Company Number: PHHY2013FR087560

PATIENT
  Age: 66 Year
  Sex: Female

DRUGS (8)
  1. ACLASTA [Suspect]
     Dosage: 5 MG
     Route: 042
     Dates: start: 201012
  2. ACLASTA [Suspect]
     Dosage: 5 MG
     Route: 042
     Dates: start: 20111205
  3. ACLASTA [Suspect]
     Dosage: 5 MG
     Route: 042
     Dates: start: 201212
  4. ARIMIDEX [Suspect]
     Indication: BREAST CANCER
     Dosage: 1 MG, QD
     Route: 048
     Dates: start: 201004
  5. BETATOP [Concomitant]
     Dosage: UNK UKN, UNK
     Route: 048
  6. LEXOMIL [Concomitant]
     Dosage: UNK UKN, UNK
     Route: 048
  7. PARACETAMOL [Concomitant]
     Dosage: UNK UKN, UNK
     Route: 048
  8. ZYMAD [Concomitant]
     Dosage: UNK UKN, UNK
     Route: 048

REACTIONS (1)
  - Deep vein thrombosis [Recovered/Resolved with Sequelae]
